FAERS Safety Report 15855928 (Version 4)
Quarter: 2019Q1

REPORT INFORMATION
  Report Type: Report from Study
  Country: None (occurrence: GB)
  Receive Date: 20190122
  Receipt Date: 20190223
  Transmission Date: 20190417
  Serious: Yes (Hospitalization, Other)
  Sender: FDA-Public Use
  Company Number: GB-ABBVIE-19K-167-2629980-00

PATIENT
  Age: 47 Year
  Sex: Male

DRUGS (6)
  1. DIAZEPAM. [Concomitant]
     Active Substance: DIAZEPAM
     Indication: PRODUCT USED FOR UNKNOWN INDICATION
  2. ARCOXIA [Concomitant]
     Active Substance: ETORICOXIB
     Indication: PRODUCT USED FOR UNKNOWN INDICATION
  3. HUMIRA [Suspect]
     Active Substance: ADALIMUMAB
     Indication: AXIAL SPONDYLOARTHRITIS
     Route: 058
     Dates: end: 201808
  4. OLANZAPINE. [Concomitant]
     Active Substance: OLANZAPINE
     Indication: PRODUCT USED FOR UNKNOWN INDICATION
  5. OMEPRAZOLE. [Concomitant]
     Active Substance: OMEPRAZOLE
     Indication: PRODUCT USED FOR UNKNOWN INDICATION
  6. TAMSULOSIN [Concomitant]
     Active Substance: TAMSULOSIN
     Indication: PRODUCT USED FOR UNKNOWN INDICATION

REACTIONS (28)
  - Gastric disorder [Recovered/Resolved]
  - Amnesia [Not Recovered/Not Resolved]
  - Joint swelling [Unknown]
  - Lung disorder [Unknown]
  - Pruritus [Unknown]
  - Therapeutic response shortened [Unknown]
  - Muscle tightness [Unknown]
  - Stomach mass [Unknown]
  - Product storage error [Unknown]
  - Paraesthesia [Unknown]
  - Time perception altered [Unknown]
  - Memory impairment [Unknown]
  - Limb discomfort [Unknown]
  - Pneumonia [Unknown]
  - Brain injury [Recovered/Resolved]
  - Musculoskeletal disorder [Unknown]
  - Hernia [Unknown]
  - Hernia [Recovered/Resolved]
  - Hyperhidrosis [Unknown]
  - Onychoclasis [Unknown]
  - Infectious mononucleosis [Unknown]
  - Product administration error [Unknown]
  - Pain [Unknown]
  - Somnolence [Unknown]
  - Mental disorder [Unknown]
  - Joint range of motion decreased [Unknown]
  - Back pain [Unknown]
  - Peripheral swelling [Unknown]

NARRATIVE: CASE EVENT DATE: 2018
